FAERS Safety Report 6941186-4 (Version None)
Quarter: 2010Q3

REPORT INFORMATION
  Report Type: 
  Country: None (occurrence: None)
  Receive Date: 20100825
  Receipt Date: 20100615
  Transmission Date: 20110219
  Serious: No
  Sender: FDA-Public Use
  Company Number: US-BRISTOL-MYERS SQUIBB COMPANY-15149966

PATIENT
  Age: 79 Year
  Sex: Female

DRUGS (1)
  1. ONGLYZA [Suspect]
     Dosage: DURATION FOR WHICH THE PATIENT TOOK THERAPY WITH SAXAGLIPTIN :3 OR 4 DAYS.

REACTIONS (2)
  - OEDEMA PERIPHERAL [None]
  - SWELLING FACE [None]
